FAERS Safety Report 16078717 (Version 1)
Quarter: 2019Q1

REPORT INFORMATION
  Report Type: Spontaneous
  Country: DK (occurrence: DK)
  Receive Date: 20190315
  Receipt Date: 20190315
  Transmission Date: 20190418
  Serious: Yes (Other)
  Sender: FDA-Public Use
  Company Number: DK-PFIZER INC-2018491807

PATIENT
  Age: 59 Year
  Sex: Female

DRUGS (7)
  1. PARACETAMOL ORIFARM [Concomitant]
     Indication: PAIN
     Dosage: 1 G, AS NEEDED, MAX 3 TIMES DAILY
     Route: 048
  2. METOPROLOL SUCCINATE. [Concomitant]
     Active Substance: METOPROLOL SUCCINATE
     Indication: HYPERTENSION
     Dosage: 37.5 MG, DAILY (25 MG IN THE MORNING AND 12.5 MG IN THE EVENING)
     Route: 048
  3. IBUMETIN [Concomitant]
     Active Substance: IBUPROFEN
     Indication: PAIN
     Dosage: 400 MG, 3X/DAY
     Route: 048
     Dates: start: 20161124
  4. MINULET [Concomitant]
     Active Substance: ETHINYL ESTRADIOL\GESTODENE
     Indication: ENDOMETRIOSIS
     Dosage: 1 DF, 1X/DAY
     Route: 048
     Dates: start: 20180314
  5. PAMOL [Concomitant]
     Active Substance: ACETAMINOPHEN
     Indication: PAIN
     Dosage: 1 G, AS NEEDED, MAX 3 TIMES DAILY
     Route: 048
  6. GESTINYL [Concomitant]
     Indication: ENDOMETRIOSIS
     Dosage: 1 DF, 1X/DAY
     Route: 048
     Dates: start: 20171216, end: 20180313
  7. ARTHROTEC FORTE [Suspect]
     Active Substance: DICLOFENAC SODIUM\MISOPROSTOL
     Indication: ARTHRITIS
     Dosage: UNK UNK, AS NEEDED
     Route: 048
     Dates: start: 20160608

REACTIONS (6)
  - Drug ineffective [Not Recovered/Not Resolved]
  - Intestinal villi atrophy [Not Recovered/Not Resolved]
  - Lactose intolerance [Not Recovered/Not Resolved]
  - Allergy to plants [Not Recovered/Not Resolved]
  - Coeliac disease [Not Recovered/Not Resolved]
  - Gluten sensitivity [Not Recovered/Not Resolved]

NARRATIVE: CASE EVENT DATE: 201803
